FAERS Safety Report 6036423-7 (Version None)
Quarter: 2009Q1

REPORT INFORMATION
  Report Type: 
  Country: None (occurrence: None)
  Receive Date: 20090112
  Receipt Date: 20090109
  Transmission Date: 20090719
  Serious: Yes (Hospitalization)
  Sender: FDA-Public Use
  Company Number: 1000000179

PATIENT
  Age: 17 Year
  Sex: Male

DRUGS (3)
  1. LEXAPRO [Suspect]
     Indication: MAJOR DEPRESSION
     Dosage: 10 MG (10 MG, 1 IN 1 D), ORAL
     Route: 048
     Dates: start: 20080425, end: 20080527
  2. LEXAPRO [Suspect]
     Indication: MAJOR DEPRESSION
     Dosage: 20 MG (20 MG, 1 IN 1 D), ORAL
     Route: 048
     Dates: start: 20080528, end: 20080601
  3. RISPERDAL [Concomitant]

REACTIONS (2)
  - NO THERAPEUTIC RESPONSE [None]
  - PRIAPISM [None]
